FAERS Safety Report 18820941 (Version 1)
Quarter: 2021Q1

REPORT INFORMATION
  Report Type: Other
  Country: CA (occurrence: CA)
  Receive Date: 20210202
  Receipt Date: 20210202
  Transmission Date: 20210419
  Serious: Yes (Death, Hospitalization, Other)
  Sender: FDA-Public Use
  Company Number: CA-APOTEX-2021AP001907

PATIENT
  Age: 67 Year
  Sex: Male

DRUGS (7)
  1. ONDANSETRON [Suspect]
     Active Substance: ONDANSETRON
     Indication: PRODUCT USED FOR UNKNOWN INDICATION
     Route: 065
  2. TEMOZOLOMIDE. [Concomitant]
     Active Substance: TEMOZOLOMIDE
     Indication: PRODUCT USED FOR UNKNOWN INDICATION
     Route: 065
  3. CAPECITABINE. [Concomitant]
     Active Substance: CAPECITABINE
     Indication: PROCTALGIA
     Route: 065
  4. MORPHINE [Concomitant]
     Active Substance: MORPHINE
     Indication: TUMOUR PAIN
     Route: 065
  5. SANDOSTATIN [Suspect]
     Active Substance: OCTREOTIDE ACETATE
     Indication: CARCINOID TUMOUR
     Dosage: 30 MILLIGRAM, Q.M.T.
     Route: 030
  6. DEXAMETHASONE. [Concomitant]
     Active Substance: DEXAMETHASONE
     Indication: PRODUCT USED FOR UNKNOWN INDICATION
     Dosage: 8 MILLIGRAM, QD
     Route: 065
  7. HYDROMORPHONE [Concomitant]
     Active Substance: HYDROMORPHONE
     Indication: PRODUCT USED FOR UNKNOWN INDICATION
     Route: 065

REACTIONS (13)
  - Death [Fatal]
  - Fatigue [Unknown]
  - Blood pressure systolic increased [Unknown]
  - Respiratory rate increased [Unknown]
  - Tachycardia [Unknown]
  - Diarrhoea [Unknown]
  - Metastases to central nervous system [Unknown]
  - Confusional state [Unknown]
  - Decreased appetite [Unknown]
  - Herpes zoster [Unknown]
  - Brain oedema [Unknown]
  - Gastroenteritis [Unknown]
  - Injection site pain [Unknown]
